FAERS Safety Report 5712593-2 (Version None)
Quarter: 2008Q2

REPORT INFORMATION
  Report Type: 
  Country: None (occurrence: None)
  Receive Date: 20080422
  Receipt Date: 20080414
  Transmission Date: 20081010
  Serious: Yes (Hospitalization)
  Sender: FDA-Public Use
  Company Number: CO-ELI_LILLY_AND_COMPANY-CO200804004357

PATIENT
  Age: 79 Year
  Sex: Female

DRUGS (8)
  1. FORTEO [Suspect]
     Indication: OSTEOPOROSIS
     Dosage: 20 UG, DAILY (1/D)
     Route: 058
  2. PREDNISONE [Concomitant]
     Dosage: UNK, UNKNOWN
     Route: 065
  3. VERAPAMIL [Concomitant]
     Dosage: UNK, UNKNOWN
     Route: 065
  4. OMEPRAZOLE [Concomitant]
     Dosage: UNK, UNKNOWN
     Route: 065
  5. FOLIC ACID [Concomitant]
     Dosage: UNK, UNKNOWN
     Route: 065
  6. METHOTREXATE [Concomitant]
     Dosage: UNK, UNKNOWN
     Route: 065
  7. CALCIUM CARBONATE [Concomitant]
     Dosage: UNK, UNKNOWN
     Route: 065
  8. VITAMIN B [Concomitant]
     Dosage: UNK, UNKNOWN
     Route: 065

REACTIONS (3)
  - BONE PAIN [None]
  - INFLUENZA [None]
  - VOMITING [None]
